FAERS Safety Report 5517906-2 (Version None)
Quarter: 2007Q4

REPORT INFORMATION
  Report Type: 
  Country: None (occurrence: None)
  Receive Date: 20071113
  Receipt Date: 20071029
  Transmission Date: 20080405
  Serious: Yes (Hospitalization)
  Sender: FDA-Public Use
  Company Number: GXKR2007US09343

PATIENT
  Age: 20 Year
  Sex: Male
  Weight: 73 kg

DRUGS (3)
  1. MEPERIDINE HYDROCHLORIDE [Suspect]
     Dosage: 50 MG,
  2. PROPOFOL [Suspect]
     Indication: SEDATION
     Dosage: 20, MG, BOLUS; INTRAVENOUS, 40 MG, BOLUS; INTRAVENOUS
     Route: 042
  3. PROMETHAZINE [Suspect]
     Dosage: 50 MG,   INTRAMUSCULAR
     Route: 030

REACTIONS (9)
  - AGGRESSION [None]
  - AGITATION [None]
  - BLOOD PRESSURE INCREASED [None]
  - CONFUSIONAL STATE [None]
  - DRUG INTERACTION [None]
  - HEART RATE INCREASED [None]
  - RESPIRATORY RATE INCREASED [None]
  - SOMNOLENCE [None]
  - SPEECH DISORDER [None]
